FAERS Safety Report 20779541 (Version 1)
Quarter: 2022Q2

REPORT INFORMATION
  Report Type: Spontaneous
  Country: US (occurrence: None)
  Receive Date: 20220502
  Receipt Date: 20220502
  Transmission Date: 20220721
  Serious: Yes (unspecified)
  Sender: FDA-Public Use
  Company Number: None

PATIENT
  Sex: Male

DRUGS (2)
  1. PRASTERONE\TESTOSTERONE [Suspect]
     Active Substance: PRASTERONE\TESTOSTERONE
     Indication: Hormone replacement therapy
     Dosage: OTHER FREQUENCY : TWICE WEEKLY;?
     Route: 030
     Dates: start: 20210624
  2. Gonadorelin 0.2 mg/ml [Concomitant]

REACTIONS (2)
  - Recalled product administered [None]
  - Injection site infection [None]
